FAERS Safety Report 10504314 (Version 1)
Quarter: 2014Q4

REPORT INFORMATION
  Report Type: Spontaneous
  Country: JP (occurrence: None)
  Receive Date: 20141003
  Receipt Date: 20141003
  Transmission Date: 20150528
  Serious: Yes (Other)
  Sender: FDA-Public Use
  Company Number: COR_00088_2014

PATIENT
  Age: 78 Year
  Sex: Male

DRUGS (3)
  1. RADIOTHERAPY [Suspect]
     Active Substance: RADIATION THERAPY
     Indication: SMALL CELL LUNG CANCER
     Dosage: 45/30 GY/FR
  2. ETOPOSIDE (ETOPOSIDE) [Suspect]
     Active Substance: ETOPOSIDE
     Indication: SMALL CELL LUNG CANCER
     Dosage: [DAYS 1-3 OF A 28 DAY CYCLE]
     Route: 042
  3. CISPLATIN (CISPLATIN) [Suspect]
     Active Substance: CISPLATIN
     Indication: SMALL CELL LUNG CANCER
     Dosage: [DAYS 1-3 OF A 28 DAY CYCLE]
     Route: 042

REACTIONS (4)
  - Leukopenia [None]
  - Hyponatraemia [None]
  - Toxicity to various agents [None]
  - Neutropenia [None]
